FAERS Safety Report 22379380 (Version 1)
Quarter: 2023Q2

REPORT INFORMATION
  Report Type: Spontaneous
  Country: US (occurrence: US)
  Receive Date: 20230529
  Receipt Date: 20230529
  Transmission Date: 20230722
  Serious: No
  Sender: FDA-Public Use
  Company Number: US-BIOVITRUM-2023-US-010592

PATIENT
  Age: 82 Year
  Sex: Female

DRUGS (1)
  1. KINERET [Suspect]
     Active Substance: ANAKINRA
     Indication: Rheumatoid arthritis
     Dosage: 0.67 ML?100 MG DAILY
     Route: 058
     Dates: start: 20190522

REACTIONS (7)
  - Product dispensing issue [Unknown]
  - Irritable bowel syndrome [Unknown]
  - Hypersensitivity [Unknown]
  - Dizziness [Unknown]
  - Gait disturbance [Unknown]
  - Brain fog [Unknown]
  - Eating disorder [Unknown]
